FAERS Safety Report 8374833-3 (Version None)
Quarter: 2012Q2

REPORT INFORMATION
  Report Type: 
  Country: None (occurrence: None)
  Receive Date: 20120521
  Receipt Date: 20120517
  Transmission Date: 20120825
  Serious: Yes (Other)
  Sender: FDA-Public Use
  Company Number: GB-TEVA-2011006299

PATIENT
  Sex: Female

DRUGS (14)
  1. ACYCLOVIR [Concomitant]
     Dosage: 800 MILLIGRAM;
     Dates: start: 20111206, end: 20111227
  2. NYSTATIN [Concomitant]
     Dosage: QDS
     Dates: start: 20111206, end: 20111227
  3. ONDANSETRON [Concomitant]
     Dates: start: 20111206, end: 20111227
  4. CYTARABINE [Suspect]
     Dates: start: 20110905, end: 20111206
  5. DAUNORUBICIN HYDROCHLORIDE [Suspect]
     Dates: start: 20110905, end: 20111206
  6. OMEPRAZOLE [Concomitant]
     Dates: start: 20111206, end: 20111227
  7. LESTAURTINIB [Suspect]
     Dosage: LESTAURTINIB OR PLACEBO
     Route: 048
     Dates: start: 20110905, end: 20111206
  8. LORATADINE [Concomitant]
     Dates: start: 20111206, end: 20111227
  9. SODIUM DOCCUCATE [Concomitant]
     Dates: start: 20111206, end: 20111213
  10. VORICONAZOLE [Concomitant]
     Dosage: 400 MILLIGRAM;
     Dates: start: 20111206, end: 20111227
  11. ACYCLOVIR [Concomitant]
     Dosage: 800 MILLIGRAM;
     Dates: start: 20111206, end: 20111227
  12. ETOPOSIDE [Suspect]
     Dates: start: 20110905, end: 20111206
  13. DOMPERIDONE [Concomitant]
     Dosage: QDS
     Dates: start: 20111206, end: 20111227
  14. SENNA-MINT WAF [Concomitant]
     Dosage: II ON
     Dates: start: 20111206, end: 20111213

REACTIONS (1)
  - THROMBOCYTOPENIA [None]
